FAERS Safety Report 9836484 (Version 1)
Quarter: 2014Q1

REPORT INFORMATION
  Report Type: Report from Study
  Country: CA (occurrence: CA)
  Receive Date: 20140123
  Receipt Date: 20140123
  Transmission Date: 20141002
  Serious: Yes (Other)
  Sender: FDA-Public Use
  Company Number: CA-BRISTOL-MYERS SQUIBB COMPANY-20036471

PATIENT
  Age: 40 Year
  Sex: Female

DRUGS (7)
  1. ORENCIA [Suspect]
     Indication: RHEUMATOID ARTHRITIS
     Dosage: 1DF:750,UNIT:NOS
     Dates: start: 20130425
  2. PLAQUENIL [Concomitant]
  3. FOLIC ACID [Concomitant]
  4. NAPROXEN [Concomitant]
  5. RABEPRAZOLE [Concomitant]
  6. GABAPENTIN [Concomitant]
  7. CYMBALTA [Concomitant]

REACTIONS (3)
  - Loss of consciousness [Unknown]
  - Blood pressure decreased [Unknown]
  - Pain in extremity [Unknown]
